FAERS Safety Report 19453338 (Version 2)
Quarter: 2021Q2

REPORT INFORMATION
  Report Type: Spontaneous
  Country: CN (occurrence: CN)
  Receive Date: 20210623
  Receipt Date: 20210623
  Transmission Date: 20210717
  Serious: Yes (Hospitalization, Other)
  Sender: FDA-Public Use
  Company Number: CN-009507513-2106CHN005209

PATIENT
  Age: 63 Year
  Sex: Male
  Weight: 49.3 kg

DRUGS (4)
  1. SODIUM CHLORIDE. [Concomitant]
     Active Substance: SODIUM CHLORIDE
     Dosage: 100 ML, ONE TIME ONE DAY
     Route: 041
     Dates: start: 20210508, end: 20210508
  2. KEYTRUDA [Suspect]
     Active Substance: PEMBROLIZUMAB
     Indication: LUNG NEOPLASM MALIGNANT
     Dosage: 200 MG, ONE TIME ONE DAY
     Route: 041
     Dates: start: 20210508, end: 20210508
  3. PEMETREXED DISODIUM [Suspect]
     Active Substance: PEMETREXED DISODIUM
     Indication: CHEMOTHERAPY
     Dosage: 0.8 G, ONE TIME ONE DAY
     Route: 041
     Dates: start: 20210508, end: 20210508
  4. SODIUM CHLORIDE. [Concomitant]
     Active Substance: SODIUM CHLORIDE
     Indication: MEDICATION DILUTION
     Dosage: 100 ML, ONE TIME ONE DAY
     Route: 041
     Dates: start: 20210508, end: 20210508

REACTIONS (1)
  - Enteritis [Recovered/Resolved]

NARRATIVE: CASE EVENT DATE: 20210531
